FAERS Safety Report 5635397-8 (Version None)
Quarter: 2008Q1

REPORT INFORMATION
  Report Type: 
  Country: None (occurrence: None)
  Receive Date: 20080222
  Receipt Date: 20080212
  Transmission Date: 20080703
  Serious: Yes (Other)
  Sender: FDA-Public Use
  Company Number: JP-PFIZER INC-2008010976

PATIENT
  Age: 17 Year
  Sex: Female

DRUGS (3)
  1. GABAPEN [Suspect]
     Dosage: DAILY DOSE:2000MG
     Route: 048
  2. ALEVIATIN [Concomitant]
  3. DRUG, UNSPECIFIED [Concomitant]

REACTIONS (1)
  - INTERSTITIAL LUNG DISEASE [None]
